FAERS Safety Report 22860883 (Version 2)
Quarter: 2024Q2

REPORT INFORMATION
  Report Type: Report from Study
  Country: CO (occurrence: CO)
  Receive Date: 20230824
  Receipt Date: 20240612
  Transmission Date: 20240717
  Serious: Yes (Life-Threatening, Hospitalization, Other)
  Sender: FDA-Public Use
  Company Number: CO-ABBVIE-5333230

PATIENT
  Sex: Female
  Weight: 106 kg

DRUGS (1)
  1. SKYRIZI [Suspect]
     Active Substance: RISANKIZUMAB-RZAA
     Indication: Psoriasis
     Dosage: FORM STRENGTH: 75 MILLIGARM
     Route: 058
     Dates: start: 20220603, end: 20230401

REACTIONS (11)
  - Loss of consciousness [Recovered/Resolved]
  - Tuberculin test positive [Unknown]
  - Liver function test increased [Recovered/Resolved]
  - Feeling cold [Recovered/Resolved]
  - Screaming [Recovered/Resolved]
  - Liver function test increased [Recovered/Resolved]
  - Influenza [Recovered/Resolved]
  - Meningitis viral [Recovered/Resolved]
  - Liver function test increased [Unknown]
  - Influenza like illness [Recovered/Resolved]
  - Hospitalisation [Unknown]

NARRATIVE: CASE EVENT DATE: 20220101
